FAERS Safety Report 17815421 (Version 6)
Quarter: 2023Q1

REPORT INFORMATION
  Report Type: Report from Study
  Country: US (occurrence: US)
  Receive Date: 20200522
  Receipt Date: 20230330
  Transmission Date: 20230418
  Serious: No
  Sender: FDA-Public Use
  Company Number: US-KYOWAKIRIN-2020BKK008063

PATIENT

DRUGS (2)
  1. CRYSVITA [Suspect]
     Active Substance: BUROSUMAB-TWZA
     Indication: Hereditary hypophosphataemic rickets
     Dosage: 90 MG, 1X/2 WEEKS
     Route: 058
     Dates: start: 20180730
  2. CRYSVITA [Suspect]
     Active Substance: BUROSUMAB-TWZA
     Indication: Hereditary hypophosphataemic rickets
     Dosage: 60 MG, 1X/MONTH
     Route: 065
     Dates: start: 20210814

REACTIONS (6)
  - Blood phosphorus decreased [Unknown]
  - Drug level decreased [Unknown]
  - Inappropriate schedule of product administration [Unknown]
  - Wrong technique in product usage process [Not Recovered/Not Resolved]
  - Incorrect dose administered [Unknown]
  - Overdose [Unknown]

NARRATIVE: CASE EVENT DATE: 20180730
